FAERS Safety Report 5469030-5 (Version None)
Quarter: 2007Q3

REPORT INFORMATION
  Report Type: 
  Country: None (occurrence: None)
  Receive Date: 20070820
  Receipt Date: 20070424
  Transmission Date: 20080115
  Serious: Yes (Life-Threatening, Hospitalization)
  Sender: FDA-Public Use
  Company Number: WAES 0704USA05364

PATIENT
  Age: 60 Year
  Sex: Male
  Weight: 118.3888 kg

DRUGS (4)
  1. JANUVIA [Suspect]
     Indication: DIABETES MELLITUS
     Dosage: 100 MG/DAILY/PO
     Route: 048
     Dates: start: 20070322, end: 20070301
  2. ACTOS [Concomitant]
  3. INSULIN [Concomitant]
  4. METFORMIN [Concomitant]

REACTIONS (3)
  - ANAPHYLACTIC REACTION [None]
  - RASH GENERALISED [None]
  - SLEEP APNOEA SYNDROME [None]
